FAERS Safety Report 9395010 (Version 1)
Quarter: 2013Q3

REPORT INFORMATION
  Report Type: Spontaneous
  Country: PL (occurrence: PL)
  Receive Date: 20130711
  Receipt Date: 20130711
  Transmission Date: 20140515
  Serious: Yes (Hospitalization)
  Sender: FDA-Public Use
  Company Number: PL-SANOFI-AVENTIS-2013SA067203

PATIENT
  Age: 53 Year
  Sex: Female

DRUGS (3)
  1. NIDRAZID [Suspect]
     Indication: ANTIBIOTIC PROPHYLAXIS
     Route: 065
  2. RIFAMPICIN [Suspect]
     Indication: ANTIBIOTIC PROPHYLAXIS
     Route: 065
  3. AMOXICLAV [Concomitant]
     Indication: BRONCHITIS

REACTIONS (15)
  - Psoriasis [Recovered/Resolved]
  - Rash pustular [Recovered/Resolved]
  - Skin exfoliation [Recovered/Resolved]
  - Skin exfoliation [Recovered/Resolved]
  - Skin lesion [Recovered/Resolved]
  - Skin lesion excision [Recovered/Resolved]
  - Skin burning sensation [Recovered/Resolved]
  - Face oedema [Recovered/Resolved]
  - Skin exfoliation [Recovered/Resolved]
  - Rash pustular [Recovered/Resolved]
  - Dermatitis exfoliative [Recovered/Resolved]
  - Erythema [Recovered/Resolved]
  - Pyrexia [Recovered/Resolved]
  - Skin discolouration [Recovered/Resolved]
  - Renal failure [Unknown]
